FAERS Safety Report 7945091-6 (Version None)
Quarter: 2011Q4

REPORT INFORMATION
  Report Type: 
  Country: None (occurrence: None)
  Receive Date: 20111129
  Receipt Date: 20111121
  Transmission Date: 20120403
  Serious: Yes (Other)
  Sender: FDA-Public Use
  Company Number: US-SANOFI-AVENTIS-2011SA070794

PATIENT
  Age: 62 Year
  Sex: Female
  Weight: 113.64 kg

DRUGS (9)
  1. DEXTROSE [Concomitant]
     Dosage: 2X
  2. LANTUS [Suspect]
     Indication: TYPE 2 DIABETES MELLITUS
     Dosage: DOSE:50 UNIT(S)
     Route: 058
  3. SIMVASTATIN [Concomitant]
  4. LANTUS [Suspect]
     Dosage: 30-40 UNITS DAILY, ALSO REPORTED AS 40-50 UNITS DAILY
     Route: 058
  5. LEVOTHYROXINE SODIUM [Concomitant]
     Indication: HYPOTHYROIDISM
  6. SOLOSTAR [Suspect]
     Indication: TYPE 2 DIABETES MELLITUS
  7. VALSARTAN [Concomitant]
     Indication: BLOOD PRESSURE
  8. SULINDAC [Concomitant]
     Indication: ARTHRITIS
     Dosage: 2 DAILY
  9. AMLODIPINE BESYLATE [Concomitant]
     Indication: BLOOD PRESSURE

REACTIONS (3)
  - FALL [None]
  - BLOOD GLUCOSE INCREASED [None]
  - UPPER LIMB FRACTURE [None]
